FAERS Safety Report 11395451 (Version 1)
Quarter: 2015Q3

REPORT INFORMATION
  Report Type: Spontaneous
  Country: JP (occurrence: JP)
  Receive Date: 20150819
  Receipt Date: 20150819
  Transmission Date: 20151125
  Serious: Yes (Other)
  Sender: FDA-Public Use
  Company Number: JP-009507513-1508JPN006308

PATIENT
  Sex: Female

DRUGS (1)
  1. NASONEX [Suspect]
     Active Substance: MOMETASONE FUROATE
     Indication: EOSINOPHILIC RHINITIS
     Dosage: USED AS NEEDED, DAILY DOSE UNKNOWN
     Route: 045

REACTIONS (2)
  - Off label use [Unknown]
  - Sudden hearing loss [Unknown]
